FAERS Safety Report 4372907-5 (Version None)
Quarter: 2004Q2

REPORT INFORMATION
  Report Type: 
  Country: None (occurrence: None)
  Receive Date: 20040603
  Receipt Date: 20040517
  Transmission Date: 20050107
  Serious: Yes (Hospitalization)
  Sender: FDA-Public Use
  Company Number: USA040567838

PATIENT
  Sex: Female

DRUGS (3)
  1. HUMULIN N [Suspect]
  2. HUMULIN 70/30 [Suspect]
  3. LANTUS [Concomitant]

REACTIONS (1)
  - UNEVALUABLE EVENT [None]
